FAERS Safety Report 9460771 (Version 1)
Quarter: 2013Q3

REPORT INFORMATION
  Report Type: Spontaneous
  Country: FR (occurrence: FR)
  Receive Date: 20130815
  Receipt Date: 20130815
  Transmission Date: 20140515
  Serious: Yes (Life-Threatening, Hospitalization)
  Sender: FDA-Public Use
  Company Number: FR-GLAXOSMITHKLINE-B0913306A

PATIENT
  Age: 66 Year
  Sex: Male
  Weight: 165 kg

DRUGS (11)
  1. ARIXTRA [Suspect]
     Indication: PRODUCT USED FOR UNKNOWN INDICATION
     Dosage: 7.5MG PER DAY
     Route: 058
     Dates: start: 20130708, end: 20130711
  2. XARELTO [Suspect]
     Indication: PRODUCT USED FOR UNKNOWN INDICATION
     Dosage: 10MG PER DAY
     Route: 048
     Dates: start: 20130712, end: 20130712
  3. FURADANTINE [Suspect]
     Indication: DYSURIA
     Dosage: 2TAB THREE TIMES PER DAY
     Route: 048
     Dates: start: 20130712, end: 20130713
  4. LASILIX [Concomitant]
  5. SEVIKAR [Concomitant]
  6. ESIDREX [Concomitant]
  7. NOVONORM [Concomitant]
  8. TRAMADOL [Concomitant]
  9. NEFOPAM [Concomitant]
  10. PARACETAMOL [Concomitant]
  11. PREVISCAN (FLUINDIONE) [Concomitant]
     Dates: start: 2000, end: 201307

REACTIONS (8)
  - Haemothorax [Recovering/Resolving]
  - Acute respiratory distress syndrome [Recovered/Resolved]
  - Musculoskeletal pain [Unknown]
  - Dysuria [Unknown]
  - Dyspnoea [Unknown]
  - Pleural effusion [Unknown]
  - Renal failure chronic [Unknown]
  - Inflammation [Unknown]
